FAERS Safety Report 24919257 (Version 1)
Quarter: 2025Q1

REPORT INFORMATION
  Report Type: Spontaneous
  Country: FR (occurrence: FR)
  Receive Date: 20250204
  Receipt Date: 20250204
  Transmission Date: 20250409
  Serious: Yes (Life-Threatening, Hospitalization, Other)
  Sender: AUROBINDO
  Company Number: FR-AFSSAPS-NY2025000060

PATIENT
  Age: 61 Year
  Sex: Male
  Weight: 94 kg

DRUGS (20)
  1. ATENOLOL [Interacting]
     Active Substance: ATENOLOL
     Indication: Hypertension
     Dosage: 50 MILLIGRAM, TWO TIMES A DAY
     Route: 048
     Dates: start: 2024, end: 20241203
  2. ATENOLOL [Interacting]
     Active Substance: ATENOLOL
     Dosage: 50 MILLIGRAM, TWO TIMES A DAY
     Route: 048
     Dates: start: 20241206, end: 20241208
  3. VIMPAT [Interacting]
     Active Substance: LACOSAMIDE
     Indication: Tonic clonic movements
     Dosage: 100 MILLIGRAM, ONCE A DAY
     Route: 042
     Dates: start: 20241201, end: 20241201
  4. VIMPAT [Interacting]
     Active Substance: LACOSAMIDE
     Dosage: 200 MILLIGRAM, TWO TIMES A DAY
     Route: 042
     Dates: start: 20241202, end: 20241209
  5. VIMPAT [Interacting]
     Active Substance: LACOSAMIDE
     Dosage: 150 MILLIGRAM, TWO TIMES A DAY
     Route: 042
     Dates: start: 20241210, end: 20241210
  6. LEVOTHYROXINE [Suspect]
     Active Substance: LEVOTHYROXINE
     Indication: Dyslipidaemia
     Dosage: 88 MICROGRAM, ONCE A DAY
     Route: 048
     Dates: start: 2024
  7. KEPPRA [Concomitant]
     Active Substance: LEVETIRACETAM
     Indication: Tonic clonic movements
     Dosage: 3500 MILLIGRAM, ONCE A DAY
     Route: 042
     Dates: start: 20241130, end: 20241130
  8. KEPPRA [Concomitant]
     Active Substance: LEVETIRACETAM
     Dosage: 2500 MILLIGRAM, ONCE A DAY
     Route: 042
     Dates: start: 20241201, end: 20241201
  9. KEPPRA [Concomitant]
     Active Substance: LEVETIRACETAM
     Dosage: 3000 MILLIGRAM, ONCE A DAY
     Route: 042
     Dates: start: 20241202, end: 20241202
  10. KEPPRA [Concomitant]
     Active Substance: LEVETIRACETAM
     Dosage: 4000 MILLIGRAM, ONCE A DAY
     Route: 042
     Dates: start: 20241203, end: 20241215
  11. KEPPRA [Concomitant]
     Active Substance: LEVETIRACETAM
     Dosage: 3000 MILLIGRAM, ONCE A DAY
     Route: 042
     Dates: start: 20241216, end: 20241218
  12. VALPROATE SODIUM [Concomitant]
     Active Substance: VALPROATE SODIUM
     Indication: Tonic clonic movements
     Dosage: 400 MILLIGRAM, TWO TIMES A DAY
     Route: 042
     Dates: start: 20241203, end: 20241218
  13. KARDEGIC [Concomitant]
     Active Substance: ASPIRIN DL-LYSINE
     Indication: Thrombosis prophylaxis
     Dosage: 75 MILLIGRAM, ONCE A DAY
     Route: 048
     Dates: start: 2024, end: 20241127
  14. KARDEGIC [Concomitant]
     Active Substance: ASPIRIN DL-LYSINE
     Dosage: 75 MILLIGRAM, ONCE A DAY
     Route: 048
     Dates: start: 20241207
  15. LOVENOX [Concomitant]
     Active Substance: ENOXAPARIN SODIUM
     Indication: Thrombosis prophylaxis
     Dosage: 1 DOSAGE FORM, ONCE A DAY
     Route: 058
     Dates: start: 20241128, end: 20241210
  16. PERINDOPRIL ERBUMINE [Concomitant]
     Active Substance: PERINDOPRIL ERBUMINE
     Indication: Hypertension
     Dosage: 10 MILLIGRAM, ONCE A DAY
     Route: 048
     Dates: start: 2024, end: 20241203
  17. PERINDOPRIL ERBUMINE [Concomitant]
     Active Substance: PERINDOPRIL ERBUMINE
     Dosage: 10 MILLIGRAM, ONCE A DAY
     Route: 048
     Dates: start: 20241207, end: 20241210
  18. Loxen [Concomitant]
     Indication: Hypertension
     Dosage: 1 MILLIGRAM, EVERY HOUR
     Route: 042
     Dates: start: 20241128, end: 20241210
  19. NOVORAPID [Concomitant]
     Active Substance: INSULIN ASPART
     Indication: Type 2 diabetes mellitus
     Dosage: 1 DOSAGE FORM, ONCE A DAY
     Route: 058
     Dates: start: 20241128, end: 20241218
  20. ACETAMINOPHEN [Concomitant]
     Active Substance: ACETAMINOPHEN
     Indication: Pain
     Route: 042
     Dates: start: 20241127

REACTIONS (2)
  - Atrioventricular block complete [Recovered/Resolved]
  - Drug interaction [Recovered/Resolved]

NARRATIVE: CASE EVENT DATE: 20241201
